FAERS Safety Report 4287302-7 (Version None)
Quarter: 2004Q1

REPORT INFORMATION
  Report Type: 
  Country: None (occurrence: None)
  Receive Date: 20040205
  Receipt Date: 20040127
  Transmission Date: 20041129
  Serious: Yes (Death)
  Sender: FDA-Public Use
  Company Number: 200308232

PATIENT
  Age: 29 Day
  Sex: Male

DRUGS (1)
  1. TYLENOL [Suspect]
     Dates: start: 20030917, end: 20030917

REACTIONS (4)
  - CEREBRAL HAEMORRHAGE [None]
  - CHILD ABUSE [None]
  - CONTUSION [None]
  - RESPIRATORY ARREST [None]
